FAERS Safety Report 21676953 (Version 1)
Quarter: 2022Q4

REPORT INFORMATION
  Report Type: Spontaneous
  Country: DE (occurrence: DE)
  Receive Date: 20221203
  Receipt Date: 20221203
  Transmission Date: 20230113
  Serious: Yes (Death, Hospitalization, Other)
  Sender: FDA-Public Use
  Company Number: DE-TORRENT-00023726

PATIENT
  Age: 70 Year
  Sex: Male

DRUGS (1)
  1. ROSUVASTATIN [Suspect]
     Active Substance: ROSUVASTATIN
     Indication: Product used for unknown indication
     Dosage: 10 MILLIGRAM, ONCE A DAY
     Route: 065

REACTIONS (9)
  - Thrombocytopenia [Fatal]
  - Hyperbilirubinaemia [Fatal]
  - Hepatic failure [Fatal]
  - Haemodynamic instability [Fatal]
  - Coagulopathy [Fatal]
  - Dyspnoea [Fatal]
  - Dizziness [Fatal]
  - Metabolic acidosis [Fatal]
  - Rash [Fatal]
